FAERS Safety Report 20016300 (Version 1)
Quarter: 2021Q4

REPORT INFORMATION
  Report Type: Spontaneous
  Country: US (occurrence: None)
  Receive Date: 20211103
  Receipt Date: 20211103
  Transmission Date: 20220303
  Serious: Yes (Hospitalization)
  Sender: FDA-Public Use
  Company Number: None

PATIENT
  Age: 69 Year
  Sex: Female

DRUGS (1)
  1. AVONEX [Suspect]
     Active Substance: INTERFERON BETA-1A
     Indication: Multiple sclerosis
     Dosage: OTHER QUANTITY : 30MCG/0.5ML;?FREQUENCY : WEEKLY;?
     Route: 030

REACTIONS (2)
  - Anaemia [None]
  - Intestinal obstruction [None]

NARRATIVE: CASE EVENT DATE: 20211025
